FAERS Safety Report 24605713 (Version 1)
Quarter: 2024Q4

REPORT INFORMATION
  Report Type: Spontaneous
  Country: US (occurrence: US)
  Receive Date: 20241111
  Receipt Date: 20241111
  Transmission Date: 20250115
  Serious: No
  Sender: TEVA
  Company Number: US-TEVA-VS-3257296

PATIENT
  Age: 70 Year
  Sex: Female
  Weight: 60.8 kg

DRUGS (1)
  1. AUSTEDO XR [Suspect]
     Active Substance: DEUTETRABENAZINE
     Indication: Dyskinesia
     Route: 048

REACTIONS (2)
  - Off label use [Unknown]
  - Blood pressure increased [Unknown]
